FAERS Safety Report 6925413-5 (Version None)
Quarter: 2010Q3

REPORT INFORMATION
  Report Type: 
  Country: None (occurrence: None)
  Receive Date: 20100813
  Receipt Date: 20100813
  Transmission Date: 20110219
  Serious: Yes (Other)
  Sender: FDA-Public Use
  Company Number: None

PATIENT
  Age: 59 Year
  Sex: Female
  Weight: 88.4514 kg

DRUGS (1)
  1. MONISTAT [Suspect]
     Indication: FUNGAL INFECTION
     Dosage: 1 OVULE ONCE VAG
     Route: 067
     Dates: start: 20100810, end: 20100810

REACTIONS (2)
  - VAGINAL SWELLING [None]
  - VULVOVAGINAL PRURITUS [None]
